FAERS Safety Report 11168248 (Version 2)
Quarter: 2015Q2

REPORT INFORMATION
  Report Type: Report from Study
  Country: US (occurrence: US)
  Receive Date: 20150605
  Receipt Date: 20150619
  Transmission Date: 20150821
  Serious: Yes (Other)
  Sender: FDA-Public Use
  Company Number: US-SA-2014SA134969

PATIENT
  Age: 50 Year
  Sex: Female

DRUGS (4)
  1. HYDROCHLOROTHIAZIDE/LISINOPRIL [Concomitant]
  2. AUBAGIO [Suspect]
     Active Substance: TERIFLUNOMIDE
     Indication: MULTIPLE SCLEROSIS
     Route: 048
     Dates: start: 20140913
  3. TIZANIDINE (TIZANIDINE) [Concomitant]
     Active Substance: TIZANIDINE
  4. AUBAGIO [Suspect]
     Active Substance: TERIFLUNOMIDE
     Indication: MULTIPLE SCLEROSIS
     Route: 048

REACTIONS (18)
  - Paraesthesia [Unknown]
  - Dyspnoea [Unknown]
  - Multiple sclerosis relapse [Unknown]
  - Upper respiratory tract infection [Unknown]
  - Hypoaesthesia [Unknown]
  - Glossodynia [Recovered/Resolved]
  - Heart rate abnormal [Unknown]
  - Headache [Unknown]
  - Condition aggravated [Unknown]
  - Pyrexia [Unknown]
  - Palpitations [Unknown]
  - Unevaluable event [Recovering/Resolving]
  - Fatigue [Unknown]
  - Hypoaesthesia oral [Recovered/Resolved]
  - Nasopharyngitis [Unknown]
  - Blood pressure increased [Recovering/Resolving]
  - Paraesthesia [Unknown]
  - Drug dose omission [Unknown]

NARRATIVE: CASE EVENT DATE: 201409
